FAERS Safety Report 25176389 (Version 1)
Quarter: 2025Q2

REPORT INFORMATION
  Report Type: Spontaneous
  Country: US (occurrence: US)
  Receive Date: 20250409
  Receipt Date: 20250409
  Transmission Date: 20250717
  Serious: No
  Sender: GLENMARK
  Company Number: US-GLENMARK PHARMACEUTICALS-2024GMK089288

PATIENT

DRUGS (2)
  1. CLOBETASOL PROPIONATE [Suspect]
     Active Substance: CLOBETASOL PROPIONATE
     Indication: Alopecia
     Dosage: UNK, OD
     Route: 061
     Dates: end: 202311
  2. SYNTHROID [Concomitant]
     Active Substance: LEVOTHYROXINE SODIUM
     Indication: Thyroid disorder
     Route: 065

REACTIONS (4)
  - Application site inflammation [Recovered/Resolved]
  - Product use in unapproved indication [Unknown]
  - Product physical consistency issue [Unknown]
  - Device delivery system issue [Unknown]
